FAERS Safety Report 19818210 (Version 1)
Quarter: 2021Q3

REPORT INFORMATION
  Report Type: Spontaneous
  Country: FR (occurrence: FR)
  Receive Date: 20210911
  Receipt Date: 20210911
  Transmission Date: 20211014
  Serious: Yes (Other)
  Sender: FDA-Public Use
  Company Number: FR-TEVA-2021-FR-1950707

PATIENT
  Age: 20 Year
  Sex: Female

DRUGS (4)
  1. ECSTASY (SANS AUTRE INFO) [Suspect]
     Active Substance: MIDOMAFETAMINE
     Dosage: UNKNOWNTHERAPY START DATE :ASKUTHERAPY END DATE:NOT ASKED
  2. CLONAZEPAM. [Suspect]
     Active Substance: CLONAZEPAM
     Dosage: UNKNOWN:THERAPY START DATE :ASKU:THERAPY END DATE :NOT ASKED
  3. CHLORHYDRATE DE TRAMADOL [Suspect]
     Active Substance: TRAMADOL HYDROCHLORIDE
     Dosage: UNKNOWNTHERAPY START DATE :ASKUTHERAPY END DATE :NOT ASKED
  4. ALCOOL [Suspect]
     Active Substance: ALCOHOL
     Dosage: UNKNOWNTHERAPY START DATE :ASKUTHERAPY END DATE:NOT ASKED

REACTIONS (3)
  - Agitation [Recovered/Resolved]
  - Drug abuse [Unknown]
  - Depressed level of consciousness [Recovered/Resolved]

NARRATIVE: CASE EVENT DATE: 202108
